FAERS Safety Report 18320770 (Version 2)
Quarter: 2020Q4

REPORT INFORMATION
  Report Type: Spontaneous
  Country: GR (occurrence: GR)
  Receive Date: 20200929
  Receipt Date: 20201016
  Transmission Date: 20210113
  Serious: Yes (Hospitalization, Other)
  Sender: FDA-Public Use
  Company Number: GR-B.I. PHARMACEUTICALS,INC./RIDGEFIELD-2020-BI-049732

PATIENT
  Age: 70 Year
  Sex: Male

DRUGS (4)
  1. IRBESARTAN. [Concomitant]
     Active Substance: IRBESARTAN
     Indication: HYPERTENSION
     Route: 065
  2. FUROSEMIDE. [Concomitant]
     Active Substance: FUROSEMIDE
     Indication: HYPERTENSION
     Route: 065
  3. METOPROLOL. [Concomitant]
     Active Substance: METOPROLOL
     Indication: HYPERTENSION
     Route: 065
  4. CATAPRESAN [Suspect]
     Active Substance: CLONIDINE
     Indication: HYPERTENSION
     Route: 065

REACTIONS (7)
  - Metabolic alkalosis [Recovered/Resolved]
  - Transaminases increased [Recovered/Resolved]
  - Ventricular extrasystoles [Unknown]
  - Normochromic normocytic anaemia [Unknown]
  - Hypokalaemia [Recovered/Resolved]
  - Acute myocardial infarction [Recovered/Resolved]
  - Thrombocytopenia [Unknown]
